FAERS Safety Report 6886969-4 (Version None)
Quarter: 2010Q3

REPORT INFORMATION
  Report Type: 
  Country: None (occurrence: None)
  Receive Date: 20100730
  Receipt Date: 20100722
  Transmission Date: 20110219
  Serious: No
  Sender: FDA-Public Use
  Company Number: US-JNJFOC-20100505902

PATIENT
  Age: 3 Month
  Sex: Female
  Weight: 7.26 kg

DRUGS (2)
  1. CONCENTRATED TYLENOL INFANT DROPS [Suspect]
     Indication: PYREXIA
     Dosage: GAVE 0.8 MLDOSE AT LEAST ONCE A DAY FOR A 2 WEEK PERIOD AS RECOMMENDED BY DR.
     Route: 048
  2. CONCENTRATED TYLENOL INFANT DROPS [Suspect]
     Indication: TEETHING
     Dosage: GAVE 0.8 MLDOSE AT LEAST ONCE A DAY FOR A 2 WEEK PERIOD AS RECOMMENDED BY DR.
     Route: 048

REACTIONS (3)
  - PRODUCT QUALITY ISSUE [None]
  - SOMNOLENCE [None]
  - VIRAL INFECTION [None]
